FAERS Safety Report 23854092 (Version 1)
Quarter: 2024Q2

REPORT INFORMATION
  Report Type: Spontaneous
  Country: GB (occurrence: GB)
  Receive Date: 20240514
  Receipt Date: 20240514
  Transmission Date: 20240715
  Serious: Yes (Other)
  Sender: FDA-Public Use
  Company Number: GB-TEVA-VS-3191643

PATIENT
  Age: 56 Year
  Sex: Female

DRUGS (1)
  1. AJOVY [Suspect]
     Active Substance: FREMANEZUMAB-VFRM
     Indication: Migraine
     Dosage: UNKNOWN
     Route: 065
     Dates: start: 20240417, end: 20240417

REACTIONS (8)
  - Influenza like illness [Recovering/Resolving]
  - Malaise [Recovering/Resolving]
  - Gastrooesophageal reflux disease [Recovering/Resolving]
  - Pain in extremity [Recovering/Resolving]
  - Chills [Recovering/Resolving]
  - Dysphonia [Recovering/Resolving]
  - Abdominal pain upper [Recovering/Resolving]
  - Drug ineffective [Unknown]

NARRATIVE: CASE EVENT DATE: 20240401
